FAERS Safety Report 8974155 (Version 1)
Quarter: 2012Q4

REPORT INFORMATION
  Report Type: Spontaneous
  Country: US (occurrence: None)
  Receive Date: 20121213
  Receipt Date: 20121213
  Transmission Date: 20130627
  Serious: Yes (Life-Threatening)
  Sender: FDA-Public Use
  Company Number: None

PATIENT
  Age: 69 Year
  Sex: Female

DRUGS (1)
  1. KETOROLAC [Suspect]
     Dosage: 15 MG IV x 2
     Route: 042
     Dates: start: 20120720, end: 20120720

REACTIONS (3)
  - Blood creatinine increased [None]
  - Oliguria [None]
  - Renal injury [None]
